FAERS Safety Report 10182621 (Version 1)
Quarter: 2014Q2

REPORT INFORMATION
  Report Type: Spontaneous
  Country: US (occurrence: None)
  Receive Date: 20140519
  Receipt Date: 20140519
  Transmission Date: 20141212
  Serious: Yes (Disabling)
  Sender: FDA-Public Use
  Company Number: None

PATIENT
  Age: 36 Year
  Sex: Female

DRUGS (1)
  1. DEPOMEDROL [Suspect]
     Indication: BACK PAIN
     Dates: start: 20130603, end: 20131018

REACTIONS (6)
  - Arachnoiditis [None]
  - Activities of daily living impaired [None]
  - Quality of life decreased [None]
  - Abasia [None]
  - Dysstasia [None]
  - Surgical failure [None]
